FAERS Safety Report 18212133 (Version 1)
Quarter: 2020Q3

REPORT INFORMATION
  Report Type: Report from Study
  Country: US (occurrence: US)
  Receive Date: 20200831
  Receipt Date: 20200831
  Transmission Date: 20201103
  Serious: Yes (Hospitalization, Other)
  Sender: FDA-Public Use
  Company Number: US-GILEAD-2020-0492636

PATIENT
  Sex: Female

DRUGS (1)
  1. AMBRISENTAN [Suspect]
     Active Substance: AMBRISENTAN
     Indication: PRODUCT USED FOR UNKNOWN INDICATION
     Dosage: 5 MG
     Route: 065
     Dates: start: 20200316

REACTIONS (5)
  - Pneumonia [Unknown]
  - Cardiac pacemaker insertion [Unknown]
  - Chronic obstructive pulmonary disease [Unknown]
  - Near death experience [Unknown]
  - Asthenia [Not Recovered/Not Resolved]
